FAERS Safety Report 8255245-X (Version None)
Quarter: 2012Q1

REPORT INFORMATION
  Report Type: 
  Country: None (occurrence: None)
  Receive Date: 20120322
  Receipt Date: 20111226
  Transmission Date: 20120608
  Serious: Yes (Death, Hospitalization)
  Sender: FDA-Public Use
  Company Number: UTC-013920

PATIENT
  Age: 67 Year
  Sex: Female
  Weight: 92.7 kg

DRUGS (5)
  1. DIURETICS (DIURETICS) [Concomitant]
  2. TYVASO [Suspect]
     Indication: PULMONARY ARTERIAL HYPERTENSION
     Dosage: 216 MCG (54 MCG, 4 IN 1 D INHALATION
     Route: 055
     Dates: start: 20100419
  3. ADCIRCA [Concomitant]
  4. TRACLEER [Concomitant]
  5. ASPIRIN [Concomitant]

REACTIONS (3)
  - RESPIRATORY FAILURE [None]
  - COR PULMONALE [None]
  - GASTROINTESTINAL HAEMORRHAGE [None]
